FAERS Safety Report 6183100-8 (Version None)
Quarter: 2009Q2

REPORT INFORMATION
  Report Type: 
  Country: None (occurrence: None)
  Receive Date: 20090506
  Receipt Date: 20090423
  Transmission Date: 20091009
  Serious: No
  Sender: FDA-Public Use
  Company Number: 2009-193326-NL

PATIENT
  Age: 39 Year
  Sex: Female

DRUGS (6)
  1. ETONOGESTREL (SEE ATTACHED PAGES FOR ADDITIONAL SUSPECT DRUGS) [Suspect]
     Indication: CONTRACEPTION
     Dosage: DF
     Dates: start: 20060419, end: 20090326
  2. ETONOGESTREL (SEE ATTACHED PAGES FOR ADDITIONAL SUSPECT DRUGS) [Suspect]
     Indication: CONTRACEPTION
     Dosage: DF
     Dates: start: 20090326
  3. LAMOTRIGINE [Suspect]
     Dosage: 150 MG BID
  4. PHENYTOIN [Suspect]
     Dosage: DF
  5. VALPROATE SODIUM [Concomitant]
  6. MEFENAMIC ACID [Concomitant]

REACTIONS (1)
  - CONVULSION [None]
